FAERS Safety Report 7043862-4 (Version None)
Quarter: 2010Q4

REPORT INFORMATION
  Report Type: 
  Country: None (occurrence: None)
  Receive Date: 20101013
  Receipt Date: 20101007
  Transmission Date: 20110411
  Serious: Yes (Hospitalization, Other)
  Sender: FDA-Public Use
  Company Number: US-MERCK-1005USA00047

PATIENT
  Age: 60 Year
  Sex: Female
  Weight: 68 kg

DRUGS (8)
  1. FOSAMAX [Suspect]
     Indication: OSTEOPENIA
     Route: 048
     Dates: start: 20020601, end: 20051101
  2. FOSAMAX [Suspect]
     Route: 048
     Dates: start: 20060101, end: 20080101
  3. FOSAMAX [Suspect]
     Indication: OSTEOPOROSIS
     Route: 048
     Dates: start: 20020601, end: 20051101
  4. FOSAMAX [Suspect]
     Route: 048
     Dates: start: 20060101, end: 20080101
  5. FOSAMAX PLUS D [Suspect]
     Route: 048
     Dates: start: 20051101, end: 20060101
  6. ALENDRONATE SODIUM [Suspect]
     Route: 065
     Dates: start: 20080927
  7. LOTREL [Concomitant]
     Indication: HYPERTENSION
     Route: 065
     Dates: start: 19930101, end: 20020101
  8. ESTROGENS (UNSPECIFIED) [Concomitant]
     Indication: MENOPAUSE
     Route: 065
     Dates: start: 19930101, end: 20020101

REACTIONS (32)
  - ANAEMIA [None]
  - ANAL ABSCESS [None]
  - ARTHRITIS [None]
  - ASTHENIA [None]
  - ASTHMA [None]
  - BLADDER DISORDER [None]
  - BLOOD CHOLESTEROL INCREASED [None]
  - CHRONIC OBSTRUCTIVE PULMONARY DISEASE [None]
  - CONSTIPATION [None]
  - DECREASED APPETITE [None]
  - DIZZINESS [None]
  - DYSLIPIDAEMIA [None]
  - EMPHYSEMA [None]
  - EXOSTOSIS [None]
  - GASTROOESOPHAGEAL REFLUX DISEASE [None]
  - HYPERCALCAEMIA [None]
  - IMPAIRED HEALING [None]
  - LUNG NEOPLASM [None]
  - NAUSEA [None]
  - ORAL DISORDER [None]
  - ORAL FUNGAL INFECTION [None]
  - ORAL TORUS [None]
  - OSTEONECROSIS OF JAW [None]
  - OVARIAN DISORDER [None]
  - PULMONARY MASS [None]
  - RENAL FAILURE ACUTE [None]
  - RHINITIS ALLERGIC [None]
  - SEPSIS [None]
  - SOFT TISSUE INFECTION [None]
  - TONGUE ULCERATION [None]
  - TOOTH DISCOLOURATION [None]
  - UPPER RESPIRATORY TRACT INFECTION [None]
